FAERS Safety Report 20298403 (Version 3)
Quarter: 2022Q1

REPORT INFORMATION
  Report Type: Other
  Country: IL (occurrence: None)
  Receive Date: 20220105
  Receipt Date: 20220203
  Transmission Date: 20220423
  Serious: Yes (Hospitalization, Other)
  Sender: FDA-Public Use
  Company Number: IL-ROCHE-2993896

PATIENT
  Age: 60 Year
  Sex: Male

DRUGS (16)
  1. OCREVUS [Suspect]
     Active Substance: OCRELIZUMAB
     Indication: Relapsing-remitting multiple sclerosis
     Dosage: LAST INFUSION 03/OCT/2021
     Route: 042
     Dates: start: 20191112
  2. LIPITOR [Concomitant]
     Active Substance: ATORVASTATIN CALCIUM
  3. CLONEX (ISRAEL) [Concomitant]
  4. DIAZEPAM [Concomitant]
     Active Substance: DIAZEPAM
  5. GABAPENTIN [Concomitant]
     Active Substance: GABAPENTIN
  6. SEROQUEL [Concomitant]
     Active Substance: QUETIAPINE FUMARATE
  7. TAMSULOSIN HYDROCHLORIDE [Concomitant]
     Active Substance: TAMSULOSIN HYDROCHLORIDE
  8. ESOMEPRAZOLE [Concomitant]
     Active Substance: ESOMEPRAZOLE
  9. REOLIN [Concomitant]
  10. CADEX (ISRAEL) [Concomitant]
  11. NEXIUM [Concomitant]
     Active Substance: ESOMEPRAZOLE MAGNESIUM
  12. NOVORAPID [Concomitant]
     Active Substance: INSULIN ASPART
  13. LORAZEPAM [Concomitant]
     Active Substance: LORAZEPAM
  14. VALPROIC ACID [Concomitant]
     Active Substance: VALPROIC ACID
  15. PREDNISONE [Concomitant]
     Active Substance: PREDNISONE
  16. PIPERACILLIN SODIUM\TAZOBACTAM SODIUM [Concomitant]
     Active Substance: PIPERACILLIN SODIUM\TAZOBACTAM SODIUM

REACTIONS (10)
  - COVID-19 [Recovering/Resolving]
  - Cerebrovascular accident [Unknown]
  - Leukocytosis [Unknown]
  - General physical health deterioration [Unknown]
  - Confusional state [Unknown]
  - Inflammatory marker increased [Unknown]
  - Gait disturbance [Unknown]
  - Inflammatory marker increased [Unknown]
  - Asthenia [Unknown]
  - Cough [Unknown]

NARRATIVE: CASE EVENT DATE: 20211220
